FAERS Safety Report 17115875 (Version 1)
Quarter: 2019Q4

REPORT INFORMATION
  Report Type: Spontaneous
  Country: US (occurrence: US)
  Receive Date: 20191204
  Receipt Date: 20191204
  Transmission Date: 20200122
  Serious: Yes (Hospitalization)
  Sender: FDA-Public Use
  Company Number: None

PATIENT
  Sex: Female

DRUGS (12)
  1. ISOSORB MONO [Concomitant]
     Active Substance: ISOSORBIDE MONONITRATE
  2. CYCLOSPORINE. [Suspect]
     Active Substance: CYCLOSPORINE
     Indication: RENAL TRANSPLANT
     Route: 048
     Dates: start: 20160318
  3. SMZ-TMP [Concomitant]
     Active Substance: SULFAMETHOXAZOLE\TRIMETHOPRIM
  4. WARFARIN [Concomitant]
     Active Substance: WARFARIN
  5. METOPROLOL. [Concomitant]
     Active Substance: METOPROLOL
  6. CELLCEPT [Suspect]
     Active Substance: MYCOPHENOLATE MOFETIL\MYCOPHENOLATE MOFETIL HYDROCHLORIDE
     Indication: RENAL TRANSPLANT
     Route: 048
     Dates: start: 20130820
  7. ATORVASTATIN [Concomitant]
     Active Substance: ATORVASTATIN
  8. CALCITRIOL. [Concomitant]
     Active Substance: CALCITRIOL
  9. LEVOTHYROXIN [Concomitant]
     Active Substance: LEVOTHYROXINE
  10. POSACONAZOLE [Concomitant]
     Active Substance: POSACONAZOLE
  11. POTTASIUM CHLORIDE MICRO [Concomitant]
  12. PREDNISONE. [Concomitant]
     Active Substance: PREDNISONE

REACTIONS (1)
  - Fall [None]
